FAERS Safety Report 9977349 (Version 1)
Quarter: 2014Q1

REPORT INFORMATION
  Report Type: Report from Study
  Country: US (occurrence: US)
  Receive Date: 20140306
  Receipt Date: 20140306
  Transmission Date: 20141002
  Serious: No
  Sender: FDA-Public Use
  Company Number: US-ABBVIE-13P-163-1167011-00

PATIENT
  Age: 57 Year
  Sex: Female
  Weight: 72.64 kg

DRUGS (8)
  1. HUMIRA [Suspect]
     Indication: PSORIATIC ARTHROPATHY
     Dates: start: 2007, end: 201301
  2. HUMIRA [Suspect]
     Indication: ANKYLOSING SPONDYLITIS
  3. METHOTREXATE [Concomitant]
     Indication: PSORIATIC ARTHROPATHY
  4. METHOTREXATE [Concomitant]
     Indication: ANKYLOSING SPONDYLITIS
  5. NOVOLOG 70/30 [Concomitant]
     Indication: DIABETES MELLITUS
  6. VICTOZA [Concomitant]
     Indication: DIABETES MELLITUS
  7. ZOLOFT [Concomitant]
     Indication: DEPRESSION
  8. AMBIEN [Concomitant]
     Indication: INSOMNIA

REACTIONS (1)
  - Arthralgia [Not Recovered/Not Resolved]
